FAERS Safety Report 5497159-4 (Version None)
Quarter: 2007Q4

REPORT INFORMATION
  Report Type: 
  Country: None (occurrence: None)
  Receive Date: 20071025
  Receipt Date: 20070326
  Transmission Date: 20080405
  Serious: No
  Sender: FDA-Public Use
  Company Number: A0600166A

PATIENT
  Age: 63 Year
  Sex: Female

DRUGS (6)
  1. ADVAIR DISKUS 100/50 [Suspect]
     Indication: ASTHMA
     Route: 055
  2. DUONEB [Suspect]
     Indication: ASTHMA
  3. PULMICORT [Suspect]
     Indication: ASTHMA
  4. SINGULAIR [Suspect]
     Indication: ASTHMA
  5. ZYRTEC [Suspect]
     Indication: ASTHMA
  6. PREDNISONE [Suspect]
     Indication: ASTHMA

REACTIONS (2)
  - DRUG INEFFECTIVE [None]
  - GASTRIC DISORDER [None]
